FAERS Safety Report 5711425-6 (Version None)
Quarter: 2008Q2

REPORT INFORMATION
  Report Type: 
  Country: None (occurrence: None)
  Receive Date: 20080418
  Receipt Date: 20080418
  Transmission Date: 20081010
  Serious: Yes (Other)
  Sender: FDA-Public Use
  Company Number: None

PATIENT
  Age: 38 Year
  Sex: Male
  Weight: 72.5755 kg

DRUGS (1)
  1. QUINAPRIL [Suspect]
     Indication: HYPERTENSION
     Dosage: 20MG ONCE DAILY
     Dates: start: 20060131, end: 20070715

REACTIONS (2)
  - ALOPECIA [None]
  - PHARMACEUTICAL PRODUCT COMPLAINT [None]
